FAERS Safety Report 15941671 (Version 1)
Quarter: 2019Q1

REPORT INFORMATION
  Report Type: Spontaneous
  Country: US (occurrence: US)
  Receive Date: 20190209
  Receipt Date: 20190209
  Transmission Date: 20190417
  Serious: Yes (Life-Threatening, Hospitalization)
  Sender: FDA-Public Use
  Company Number: None

PATIENT
  Age: 54 Year
  Sex: Male
  Weight: 76.5 kg

DRUGS (1)
  1. CIPRO [Suspect]
     Active Substance: CIPROFLOXACIN HYDROCHLORIDE
     Indication: DRUG THERAPY
     Route: 048

REACTIONS (3)
  - Blindness unilateral [None]
  - Transient ischaemic attack [None]
  - Clostridium test positive [None]

NARRATIVE: CASE EVENT DATE: 20170901
